FAERS Safety Report 7445115-9 (Version None)
Quarter: 2011Q2

REPORT INFORMATION
  Report Type: 
  Country: None (occurrence: None)
  Receive Date: 20110427
  Receipt Date: 20110427
  Transmission Date: 20111010
  Serious: Yes (Hospitalization)
  Sender: FDA-Public Use
  Company Number: None

PATIENT
  Sex: Female
  Weight: 63.5 kg

DRUGS (2)
  1. AZACITIDINE [Suspect]
     Indication: ACUTE MYELOID LEUKAEMIA
     Dosage: 75 MG/M2 QD IV
     Route: 042
  2. REVLIMID [Suspect]
     Dosage: REVLEMMID 25 MG QD PO
     Route: 048

REACTIONS (7)
  - INFECTION [None]
  - FEBRILE NEUTROPENIA [None]
  - COUGH [None]
  - URINARY TRACT INFECTION ENTEROCOCCAL [None]
  - BRONCHOPULMONARY ASPERGILLOSIS [None]
  - LUNG NEOPLASM [None]
  - STREPTOCOCCAL INFECTION [None]
